FAERS Safety Report 25194938 (Version 2)
Quarter: 2025Q4

REPORT INFORMATION
  Report Type: Report from Study
  Country: US (occurrence: None)
  Receive Date: 20250415
  Receipt Date: 20251014
  Transmission Date: 20260118
  Serious: Yes (Other)
  Sender: UCB
  Company Number: US-UCBSA-2025021562

PATIENT
  Age: 48 Year
  Weight: 50 kg

DRUGS (1)
  1. FENFLURAMINE [Suspect]
     Active Substance: FENFLURAMINE
     Indication: Seizure
     Dosage: UNK

REACTIONS (1)
  - Tricuspid valve incompetence [Not Recovered/Not Resolved]
